FAERS Safety Report 6852384-2 (Version None)
Quarter: 2010Q3

REPORT INFORMATION
  Report Type: 
  Country: None (occurrence: None)
  Receive Date: 20100717
  Receipt Date: 20071213
  Transmission Date: 20110219
  Serious: No
  Sender: FDA-Public Use
  Company Number: US-PFIZER INC-2007096611

PATIENT
  Sex: Female

DRUGS (8)
  1. CHANTIX [Suspect]
     Indication: SMOKING CESSATION THERAPY
     Dates: start: 20071001
  2. BUPROPION HYDROCHLORIDE [Suspect]
     Indication: DEPRESSION
     Dates: end: 20071101
  3. BUPROPION HYDROCHLORIDE [Suspect]
     Indication: SMOKING CESSATION THERAPY
  4. SYNTHROID [Concomitant]
     Indication: THYROID DISORDER
  5. LIPITOR [Concomitant]
  6. PRILOSEC [Concomitant]
  7. COMBIVENT [Concomitant]
     Route: 055
  8. GABAPENTIN [Concomitant]
     Indication: PAIN IN EXTREMITY

REACTIONS (5)
  - BURNING SENSATION [None]
  - DEPRESSION [None]
  - DYSGEUSIA [None]
  - HEADACHE [None]
  - ORAL PAIN [None]
